FAERS Safety Report 5213098-8 (Version None)
Quarter: 2007Q1

REPORT INFORMATION
  Report Type: 
  Country: None (occurrence: None)
  Receive Date: 20070118
  Receipt Date: 20070118
  Transmission Date: 20070707
  Serious: Yes (Death)
  Sender: FDA-Public Use
  Company Number: None

PATIENT
  Age: 83 Year
  Sex: Male
  Weight: 93.2 kg

DRUGS (6)
  1. AMIODARONE HCL [Suspect]
     Indication: ATRIAL FIBRILLATION
     Dosage: 400MG DAILY PO
     Route: 048
     Dates: start: 20040801, end: 20060801
  2. AMIODARONE HCL [Suspect]
     Indication: CARDIAC FAILURE CONGESTIVE
     Dosage: 400MG DAILY PO
     Route: 048
     Dates: start: 20040801, end: 20060801
  3. WARFARIN SODIUM [Concomitant]
  4. TOPROL-XL [Concomitant]
  5. SYNTHROID [Concomitant]
  6. M.V.I. [Concomitant]

REACTIONS (9)
  - DRUG TOXICITY [None]
  - HYPOXIA [None]
  - LUNG INFILTRATION [None]
  - NAUSEA [None]
  - PULMONARY FIBROSIS [None]
  - PULMONARY OEDEMA [None]
  - VERTIGO [None]
  - VOMITING [None]
  - WEIGHT DECREASED [None]
